FAERS Safety Report 25747915 (Version 2)
Quarter: 2025Q4

REPORT INFORMATION
  Report Type: Report from Study
  Country: CA (occurrence: CA)
  Receive Date: 20250901
  Receipt Date: 20251007
  Transmission Date: 20260119
  Serious: Yes (Hospitalization)
  Sender: ABBVIE
  Company Number: CA-ABBVIE-6436990

PATIENT
  Age: 54 Year
  Sex: Female

DRUGS (2)
  1. SKYRIZI [Suspect]
     Active Substance: RISANKIZUMAB-RZAA
     Indication: Psoriasis
     Dosage: SKYRIZI INJ  ?FIRST ADMIN DATE APPROXIMATELY JUNE 2022
     Route: 058
     Dates: start: 202206
  2. SKYRIZI [Suspect]
     Active Substance: RISANKIZUMAB-RZAA
     Route: 058

REACTIONS (1)
  - Kidney infection [Recovered/Resolved]

NARRATIVE: CASE EVENT DATE: 20250101
